FAERS Safety Report 4913040-0 (Version None)
Quarter: 2006Q1

REPORT INFORMATION
  Report Type: 
  Country: None (occurrence: None)
  Receive Date: 20060210
  Receipt Date: 20060202
  Transmission Date: 20060701
  Serious: No
  Sender: FDA-Public Use
  Company Number: 1280-1

PATIENT
  Age: 74 Year
  Sex: Female
  Weight: 83.9154 kg

DRUGS (1)
  1. LEVOTHYROXINE SODIUM TABLETS 50MCG / SANDOZ / MOVA [Suspect]
     Indication: THYROID DISORDER
     Dosage: 50MCG, 1 TAB, QD, PO
     Route: 048
     Dates: start: 20030101

REACTIONS (4)
  - ABASIA [None]
  - ASTHENIA [None]
  - FALL [None]
  - TREMOR [None]
